FAERS Safety Report 17140920 (Version 3)
Quarter: 2020Q1

REPORT INFORMATION
  Report Type: Spontaneous
  Country: JP (occurrence: JP)
  Receive Date: 20191211
  Receipt Date: 20200122
  Transmission Date: 20200409
  Serious: Yes (Life-Threatening, Other)
  Sender: FDA-Public Use
  Company Number: JP-PFIZER INC-2019534335

PATIENT
  Age: 84 Year
  Sex: Female
  Weight: 37 kg

DRUGS (16)
  1. NEXIUM [Concomitant]
     Active Substance: ESOMEPRAZOLE MAGNESIUM
     Dosage: 20 MG, 1X/DAY
     Route: 048
  2. NEUROTROPIN [CYANOCOBALAMIN;LIDOCAINE HYDROCHLORIDE;PYRIDOXINE HYDROCH [Concomitant]
     Dosage: 2 DF, UNK
     Route: 048
  3. AMITIZA [Concomitant]
     Active Substance: LUBIPROSTONE
     Dosage: UNK
     Route: 048
  4. ATORVASTATIN [Concomitant]
     Active Substance: ATORVASTATIN
     Dosage: 10 MG, UNK
     Route: 048
  5. CELECOX [Suspect]
     Active Substance: CELECOXIB
     Dosage: 200 MG, UNK
     Route: 048
  6. BISOPROLOL FUMARATE. [Concomitant]
     Active Substance: BISOPROLOL FUMARATE
     Dosage: 0.625 MG, UNKNOWN FREQ.
     Route: 048
  7. TRAMCET [Concomitant]
     Active Substance: ACETAMINOPHEN\TRAMADOL
     Dosage: 1DF, UNK FREQ.
     Route: 048
  8. MAGMITT [Concomitant]
     Active Substance: MAGNESIUM OXIDE
     Dosage: 500 MG, UNK
     Route: 048
  9. AZILVA [Concomitant]
     Active Substance: AZILSARTAN KAMEDOXOMIL
     Dosage: 20 MG, UNK
     Route: 048
  10. BETAHISTINE MESILATE [Concomitant]
     Active Substance: BETAHISTINE MESILATE
     Dosage: 12 MG, UNK
     Route: 048
  11. ETIZOLAM [Concomitant]
     Active Substance: ETIZOLAM
     Dosage: 1 MG, 1X/DAY
     Route: 048
  12. AROTINOLOL [Concomitant]
     Active Substance: AROTINOLOL
     Dosage: 10 MG, UNK
     Route: 048
  13. WARFARIN [Concomitant]
     Active Substance: WARFARIN
     Dosage: 1.5 MG, UNK
     Route: 048
  14. NICORANDIL [Concomitant]
     Active Substance: NICORANDIL
     Dosage: 10 MG, UNK
     Route: 048
  15. CIBENOL [Suspect]
     Active Substance: CIFENLINE
     Indication: ATRIAL FIBRILLATION
     Dosage: 200 MG/DAY, TWICE DAILY, AFTER BREAKFAST AND AT BEDTIME
     Route: 048
  16. SENNOSIDE [SENNOSIDE A+B] [Concomitant]
     Active Substance: SENNOSIDES A AND B
     Dosage: 24 MG, 1X/DAY
     Route: 048

REACTIONS (1)
  - Hypoglycaemic coma [Recovered/Resolved]

NARRATIVE: CASE EVENT DATE: 20191010
